FAERS Safety Report 18215455 (Version 2)
Quarter: 2020Q3

REPORT INFORMATION
  Report Type: Spontaneous
  Country: FR (occurrence: FR)
  Receive Date: 20200831
  Receipt Date: 20200921
  Transmission Date: 20201103
  Serious: Yes (Life-Threatening, Hospitalization)
  Sender: FDA-Public Use
  Company Number: FR-COEPTIS PHARMACEUTICALS, INC.-COE-2020-000009

PATIENT
  Age: 78 Year
  Sex: Male

DRUGS (1)
  1. AMLODIPINE [Suspect]
     Active Substance: AMLODIPINE BESYLATE
     Indication: HYPERTENSION

REACTIONS (14)
  - Weight decreased [Unknown]
  - Vitamin D decreased [Unknown]
  - C-reactive protein increased [Unknown]
  - Poor dental condition [Recovering/Resolving]
  - Vitamin C decreased [Unknown]
  - Blood albumin decreased [Unknown]
  - Blood iron decreased [Unknown]
  - Blood folate decreased [Unknown]
  - General physical health deterioration [Recovering/Resolving]
  - Gingival hypertrophy [Recovering/Resolving]
  - Dehydration [Unknown]
  - Gingival bleeding [Recovered/Resolved]
  - Malnutrition [Unknown]
  - Decreased appetite [Recovering/Resolving]
